FAERS Safety Report 16538904 (Version 1)
Quarter: 2019Q3

REPORT INFORMATION
  Report Type: Spontaneous
  Country: US (occurrence: US)
  Receive Date: 20190524
  Receipt Date: 20190524
  Transmission Date: 20191004
  Serious: Yes (Hospitalization)
  Sender: FDA-Public Use
  Company Number: None

PATIENT
  Age: 71 Year
  Sex: Male
  Weight: 92.5 kg

DRUGS (1)
  1. YESCARTA [Suspect]
     Active Substance: AXICABTAGENE CILOLEUCEL
     Indication: DIFFUSE LARGE B-CELL LYMPHOMA
     Route: 042
     Dates: start: 20190122

REACTIONS (7)
  - Pancytopenia [None]
  - Neurotoxicity [None]
  - Hypofibrinogenaemia [None]
  - Cytokine release syndrome [None]
  - Hypotension [None]
  - Transfusion [None]
  - Disseminated intravascular coagulation [None]
